FAERS Safety Report 10952303 (Version 1)
Quarter: 2015Q1

REPORT INFORMATION
  Report Type: Spontaneous
  Country: US (occurrence: None)
  Receive Date: 20150323
  Receipt Date: 20150323
  Transmission Date: 20150721
  Serious: No
  Sender: FDA-Public Use
  Company Number: VIT-2015-00142

PATIENT
  Age: 74 Year
  Sex: Male
  Weight: 104 kg

DRUGS (18)
  1. LASIX [Concomitant]
     Active Substance: FUROSEMIDE
  2. NOVOLOG INSULIN (INSULIN ASPART) [Concomitant]
  3. PRORENAL MULTIVITAMINS (LIMAPROST, PRORENAL MULTIVITAMINS) [Concomitant]
  4. THEOPHYLLINE [Concomitant]
     Active Substance: THEOPHYLLINE ANHYDROUS
  5. LEVEMIR [Concomitant]
     Active Substance: INSULIN DETEMIR
  6. MONTELUKAST [Concomitant]
     Active Substance: MONTELUKAST SODIUM
  7. RENVELA [Concomitant]
     Active Substance: SEVELAMER CARBONATE
  8. VELPHORO [Suspect]
     Active Substance: FERRIC OXYHYDROXIDE
     Indication: HYPERPHOSPHATAEMIA
     Route: 048
     Dates: start: 2014
  9. AMLODIPINE [Concomitant]
     Active Substance: AMLODIPINE BESYLATE
  10. DOXYCYCLINE HYCLATE. [Concomitant]
     Active Substance: DOXYCYCLINE HYCLATE
  11. FLUTICASONE (NASAL SPRAY) [Concomitant]
  12. PRAVASTATIN [Concomitant]
     Active Substance: PRAVASTATIN\PRAVASTATIN SODIUM
  13. SALBUTAMOL [Concomitant]
     Active Substance: ALBUTEROL
  14. ADVAIR (FLUTICASONE PROPIONATE) [Concomitant]
  15. ACETYLSALICYLIC ACID [Concomitant]
     Active Substance: ASPIRIN
  16. CARDURA [Concomitant]
     Active Substance: DOXAZOSIN MESYLATE
  17. PREDNISONE. [Concomitant]
     Active Substance: PREDNISONE
  18. VIAGRA [Concomitant]
     Active Substance: SILDENAFIL CITRATE

REACTIONS (3)
  - Product quality issue [None]
  - Dysgeusia [None]
  - Product taste abnormal [None]

NARRATIVE: CASE EVENT DATE: 20150119
